FAERS Safety Report 23604155 (Version 1)
Quarter: 2024Q1

REPORT INFORMATION
  Report Type: Spontaneous
  Country: US (occurrence: US)
  Receive Date: 20240307
  Receipt Date: 20240307
  Transmission Date: 20240410
  Serious: No
  Sender: FDA-Public Use
  Company Number: US-STRIDES ARCOLAB LIMITED-2023SP018664

PATIENT
  Age: 34 Year
  Sex: Female

DRUGS (10)
  1. NALOXONE [Suspect]
     Active Substance: NALOXONE
     Indication: Drug use disorder
     Dosage: UNK
     Route: 065
  2. HYDROXYZINE HYDROCHLORIDE [Suspect]
     Active Substance: HYDROXYZINE HYDROCHLORIDE
     Indication: Anxiety
     Dosage: UNK
     Route: 065
  3. HYDROXYZINE HYDROCHLORIDE [Suspect]
     Active Substance: HYDROXYZINE HYDROCHLORIDE
     Indication: Irritability
  4. BUPRENORPHINE\NALOXONE [Suspect]
     Active Substance: BUPRENORPHINE\NALOXONE
     Indication: Drug use disorder
     Dosage: 2 MILLIGRAM
     Route: 060
  5. BUPRENORPHINE\NALOXONE [Suspect]
     Active Substance: BUPRENORPHINE\NALOXONE
     Dosage: 0.5 MILLIGRAM, EVERY 6 HRS (FOR FIRST 24H)
     Route: 060
  6. BUPRENORPHINE\NALOXONE [Suspect]
     Active Substance: BUPRENORPHINE\NALOXONE
     Dosage: 1 MILLIGRAM, EVERY 6 HRS (FOR SECOND 24H)
     Route: 060
  7. BUPRENORPHINE\NALOXONE [Suspect]
     Active Substance: BUPRENORPHINE\NALOXONE
     Dosage: 2 MILLIGRAM, EVERY 6 HRS (FOR THIRD 24H)
     Route: 060
  8. BUPRENORPHINE\NALOXONE [Suspect]
     Active Substance: BUPRENORPHINE\NALOXONE
     Dosage: 8 MILLIGRAM, BID (MAINTENANCE DOSE)
     Route: 060
  9. CLONIDINE [Suspect]
     Active Substance: CLONIDINE
     Indication: Anxiety
     Dosage: 0.2 MILLIGRAM, TID
     Route: 065
  10. CLONIDINE [Suspect]
     Active Substance: CLONIDINE
     Indication: Irritability

REACTIONS (2)
  - Maternal exposure during pregnancy [Unknown]
  - Off label use [Unknown]
